FAERS Safety Report 23952614 (Version 2)
Quarter: 2024Q2

REPORT INFORMATION
  Report Type: Spontaneous
  Country: FR (occurrence: FR)
  Receive Date: 20240607
  Receipt Date: 20240619
  Transmission Date: 20240716
  Serious: No
  Sender: FDA-Public Use
  Company Number: FR-JAZZ PHARMACEUTICALS-2024-FR-008318

PATIENT

DRUGS (4)
  1. CANNABIDIOL [Suspect]
     Active Substance: CANNABIDIOL
     Indication: Epilepsy
     Dosage: UNK
  2. CANNABIDIOL [Suspect]
     Active Substance: CANNABIDIOL
     Dosage: 300 MILLIGRAM, BID
     Route: 048
     Dates: start: 20240323
  3. VIMPAT [Suspect]
     Active Substance: LACOSAMIDE
     Indication: Epilepsy
     Dosage: 300 MILLIGRAM, QD
     Route: 048
     Dates: start: 20240313
  4. CENOBAMATE [Concomitant]
     Active Substance: CENOBAMATE
     Indication: Epilepsy
     Dosage: 400 MILLIGRAM, QD
     Route: 048
     Dates: start: 20240407, end: 20240430

REACTIONS (1)
  - Dysgeusia [Not Recovered/Not Resolved]

NARRATIVE: CASE EVENT DATE: 20240330
